FAERS Safety Report 19780297 (Version 1)
Quarter: 2021Q3

REPORT INFORMATION
  Report Type: Spontaneous
  Country: CA (occurrence: CA)
  Receive Date: 20210902
  Receipt Date: 20210902
  Transmission Date: 20211014
  Serious: Yes (Other)
  Sender: FDA-Public Use
  Company Number: CA-UCBSA-2021040985

PATIENT
  Age: 7 Year
  Sex: Female
  Weight: 24 kg

DRUGS (1)
  1. BRIVLERA [Suspect]
     Active Substance: BRIVARACETAM
     Indication: PRODUCT USED FOR UNKNOWN INDICATION
     Dosage: 25 MILLIGRAM, 2X/DAY (BID)

REACTIONS (6)
  - Gait inability [Unknown]
  - Asthenia [Unknown]
  - Inappropriate affect [Unknown]
  - Mental impairment [Unknown]
  - Seizure [Unknown]
  - Staring [Unknown]
